FAERS Safety Report 4588015-4 (Version None)
Quarter: 2005Q1

REPORT INFORMATION
  Report Type: 
  Country: None (occurrence: None)
  Receive Date: 20050217
  Receipt Date: 20050202
  Transmission Date: 20050727
  Serious: Yes (Death)
  Sender: FDA-Public Use
  Company Number: 2004S1003562

PATIENT
  Age: 27 Year
  Sex: Male

DRUGS (7)
  1. CLOZAPINE [Suspect]
     Dosage: 200 MG QAM AND 400 MG HS, ORAL
     Route: 048
  2. CLONAZEPAM [Concomitant]
  3. LEVOTHYROXINE SODIUM [Concomitant]
  4. DESMOPRESSIN ACETATE [Concomitant]
  5. OXCARBAZEPINE [Concomitant]
  6. PAROXETINE [Concomitant]
  7. ANTI-ASTHMATICS [Concomitant]

REACTIONS (5)
  - ASTHMA [None]
  - FEELING ABNORMAL [None]
  - LOSS OF CONSCIOUSNESS [None]
  - PNEUMONIA [None]
  - REFUSAL OF TREATMENT BY PATIENT [None]
